FAERS Safety Report 21025309 (Version 9)
Quarter: 2022Q4

REPORT INFORMATION
  Report Type: Report from Study
  Country: US (occurrence: US)
  Receive Date: 20220630
  Receipt Date: 20221128
  Transmission Date: 20230112
  Serious: No
  Sender: FDA-Public Use
  Company Number: US-NOVARTISTESTPH-NVSC2022US147988

PATIENT
  Sex: Female

DRUGS (1)
  1. ENTRESTO [Suspect]
     Active Substance: SACUBITRIL\VALSARTAN
     Indication: Product used for unknown indication
     Dosage: 1 DOSAGE FORM, BID (24/26 MG)
     Route: 065

REACTIONS (8)
  - Heart rate increased [Recovering/Resolving]
  - Chest pain [Unknown]
  - Weight fluctuation [Unknown]
  - Dyspnoea exertional [Unknown]
  - Blood potassium decreased [Unknown]
  - Fatigue [Unknown]
  - Underdose [Unknown]
  - Wrong technique in product usage process [Unknown]
